FAERS Safety Report 21037825 (Version 1)
Quarter: 2022Q3

REPORT INFORMATION
  Report Type: Spontaneous
  Country: US (occurrence: US)
  Receive Date: 20220704
  Receipt Date: 20220704
  Transmission Date: 20221027
  Serious: Yes (Other)
  Sender: FDA-Public Use
  Company Number: US-MLMSERVICE-20220620-3621318-1

PATIENT
  Age: 18 Year
  Sex: Male

DRUGS (15)
  1. IRINOTECAN HYDROCHLORIDE [Suspect]
     Active Substance: IRINOTECAN HYDROCHLORIDE
     Indication: Metastases to soft tissue
     Dosage: UNK
     Route: 065
  2. IRINOTECAN HYDROCHLORIDE [Suspect]
     Active Substance: IRINOTECAN HYDROCHLORIDE
     Indication: Metastases to the mediastinum
  3. IRINOTECAN HYDROCHLORIDE [Suspect]
     Active Substance: IRINOTECAN HYDROCHLORIDE
     Indication: Metastases to heart
  4. IRINOTECAN HYDROCHLORIDE [Suspect]
     Active Substance: IRINOTECAN HYDROCHLORIDE
     Indication: Metastases to lung
  5. IRINOTECAN HYDROCHLORIDE [Suspect]
     Active Substance: IRINOTECAN HYDROCHLORIDE
     Indication: Desmoplastic small round cell tumour
  6. IRINOTECAN HYDROCHLORIDE [Suspect]
     Active Substance: IRINOTECAN HYDROCHLORIDE
     Indication: Metastases to bone
  7. TEMODAR [Suspect]
     Active Substance: TEMOZOLOMIDE
     Indication: Metastases to the mediastinum
     Dosage: UNK
     Route: 065
  8. TEMODAR [Suspect]
     Active Substance: TEMOZOLOMIDE
     Indication: Metastases to soft tissue
  9. TEMODAR [Suspect]
     Active Substance: TEMOZOLOMIDE
     Indication: Metastases to heart
  10. TEMODAR [Suspect]
     Active Substance: TEMOZOLOMIDE
     Indication: Desmoplastic small round cell tumour
  11. TEMODAR [Suspect]
     Active Substance: TEMOZOLOMIDE
     Indication: Metastases to bone
  12. TEMODAR [Suspect]
     Active Substance: TEMOZOLOMIDE
     Indication: Metastases to lung
  13. LITHIUM [Concomitant]
     Active Substance: LITHIUM
     Indication: Bipolar disorder
     Dosage: UNK
     Route: 065
  14. ESCITALOPRAM [Concomitant]
     Active Substance: ESCITALOPRAM OXALATE
     Indication: Bipolar disorder
     Dosage: UNK
     Route: 065
  15. ARIPIPRAZOLE [Concomitant]
     Active Substance: ARIPIPRAZOLE
     Indication: Bipolar disorder
     Dosage: UNK
     Route: 065

REACTIONS (2)
  - Ileus [Unknown]
  - Intestinal obstruction [Unknown]
